FAERS Safety Report 12675499 (Version 1)
Quarter: 2016Q3

REPORT INFORMATION
  Report Type: Spontaneous
  Country: US (occurrence: None)
  Receive Date: 20160822
  Receipt Date: 20160822
  Transmission Date: 20161109
  Serious: Yes (Death, Hospitalization)
  Sender: FDA-Public Use
  Company Number: None

PATIENT
  Age: 66 Year
  Sex: Female
  Weight: 85 kg

DRUGS (3)
  1. FLUOROURACIL (5-FU) [Suspect]
     Active Substance: FLUOROURACIL
     Dates: end: 20160714
  2. ELOXATIN [Suspect]
     Active Substance: OXALIPLATIN
     Dates: end: 20160712
  3. CAMPTOSAR [Suspect]
     Active Substance: IRINOTECAN HYDROCHLORIDE
     Dates: end: 20160712

REACTIONS (5)
  - Sepsis [None]
  - Shock [None]
  - Cardiac arrest [None]
  - Fall [None]
  - Gallbladder perforation [None]

NARRATIVE: CASE EVENT DATE: 20160810
